FAERS Safety Report 8571952-3 (Version None)
Quarter: 2012Q3

REPORT INFORMATION
  Report Type: 
  Country: None (occurrence: None)
  Receive Date: 20120806
  Receipt Date: 20120718
  Transmission Date: 20120928
  Serious: No
  Sender: FDA-Public Use
  Company Number: US-009507513-1207USA007860

PATIENT

DRUGS (11)
  1. IBUPROFEN [Concomitant]
  2. RANITIDINE [Concomitant]
     Dosage: 75 MG, UNK
  3. OMEPRAZOLE [Concomitant]
     Dosage: 20 MG, UNK
  4. REBETOL [Suspect]
     Dosage: UNK
  5. SINGULAIR [Concomitant]
     Dosage: 10 MG, UNK
  6. ZOLPIDEM TARTRATE [Concomitant]
     Dosage: 5 MG, UNK
  7. PEGASYS [Suspect]
  8. VICTRELIS [Suspect]
     Dosage: 800 MG, TID
     Route: 048
  9. FLUTICASONE PROPIONATE [Concomitant]
     Dosage: 500/50
  10. TRIAMTERENE AND HYDROCHLOROTHIAZIDE [Concomitant]
     Dosage: 37.5-25
  11. VALIUM [Concomitant]
     Dosage: 2 MG, UNK

REACTIONS (2)
  - RED BLOOD CELL COUNT DECREASED [None]
  - WHITE BLOOD CELL COUNT DECREASED [None]
